FAERS Safety Report 8308258-3 (Version None)
Quarter: 2012Q2

REPORT INFORMATION
  Report Type: 
  Country: None (occurrence: None)
  Receive Date: 20120424
  Receipt Date: 20120419
  Transmission Date: 20120825
  Serious: Yes (Other)
  Sender: FDA-Public Use
  Company Number: PL-ROCHE-1053064

PATIENT
  Age: 69 Year
  Sex: Female
  Weight: 90 kg

DRUGS (4)
  1. RITUXIMAB [Suspect]
     Indication: B-CELL LYMPHOMA
     Dates: start: 20080601, end: 20090101
  2. CYCLOPHOSPHAMIDE [Suspect]
     Indication: B-CELL LYMPHOMA
     Dates: start: 20080601, end: 20090101
  3. VINCRISTINE [Suspect]
     Indication: B-CELL LYMPHOMA
     Dates: start: 20080601, end: 20090101
  4. PREDNISONE TAB [Suspect]
     Indication: B-CELL LYMPHOMA
     Dates: start: 20080601, end: 20090101

REACTIONS (5)
  - HYPERGLYCAEMIA [None]
  - DISEASE RECURRENCE [None]
  - HAEMOLYTIC ANAEMIA [None]
  - URINARY TRACT INFECTION [None]
  - NEUROPATHY PERIPHERAL [None]
